FAERS Safety Report 9753125 (Version 1)
Quarter: 2013Q4

REPORT INFORMATION
  Report Type: Spontaneous
  Country: US (occurrence: US)
  Receive Date: 20131213
  Receipt Date: 20131213
  Transmission Date: 20140711
  Serious: No
  Sender: FDA-Public Use
  Company Number: US-GILEAD-2010-0026340

PATIENT
  Age: 82 Year
  Sex: Male

DRUGS (17)
  1. LETAIRIS [Suspect]
     Indication: PULMONARY ARTERIAL HYPERTENSION
  2. REVATIO [Concomitant]
  3. DIOVAN [Concomitant]
  4. SPIRONOLACTONE [Concomitant]
  5. METOLAZONE [Concomitant]
  6. BUMETANIDE [Concomitant]
  7. PRAVACHOL [Concomitant]
  8. ALBUTEROL [Concomitant]
  9. ALLOPURINOL [Concomitant]
  10. CALCIUM ACETATE [Concomitant]
  11. ZEMPLAR [Concomitant]
  12. PREVACID [Concomitant]
  13. HUMALOG PEN [Concomitant]
  14. SPIRIVA [Concomitant]
  15. MULTIVITAMIN [Concomitant]
  16. VITAMIN D [Concomitant]
  17. SYNTHROID [Concomitant]

REACTIONS (1)
  - Local swelling [Not Recovered/Not Resolved]
